FAERS Safety Report 6031595-2 (Version None)
Quarter: 2008Q4

REPORT INFORMATION
  Report Type: 
  Country: None (occurrence: None)
  Receive Date: 20081229
  Receipt Date: 20080905
  Transmission Date: 20090506
  Serious: Yes (Hospitalization)
  Sender: FDA-Public Use
  Company Number: 177099USA

PATIENT
  Sex: Female

DRUGS (1)
  1. CLOZAPINE [Suspect]

REACTIONS (1)
  - CELLULITIS [None]
